FAERS Safety Report 21437377 (Version 1)
Quarter: 2022Q4

REPORT INFORMATION
  Report Type: Spontaneous
  Country: CA (occurrence: CA)
  Receive Date: 20221011
  Receipt Date: 20221011
  Transmission Date: 20230113
  Serious: Yes (Death, Life-Threatening, Hospitalization, Other)
  Sender: FDA-Public Use
  Company Number: CA-ABBVIE-4133785

PATIENT
  Age: 58 Year
  Sex: Male

DRUGS (20)
  1. HUMIRA [Suspect]
     Active Substance: ADALIMUMAB
     Indication: Product used for unknown indication
     Dosage: SOLUTION SUBCUTANEOUS
     Route: 058
  2. RITUXIMAB [Suspect]
     Active Substance: RITUXIMAB
     Indication: Product used for unknown indication
     Route: 065
  3. ENBREL [Suspect]
     Active Substance: ETANERCEPT
     Indication: Product used for unknown indication
     Route: 065
  4. SULFASALAZINE [Suspect]
     Active Substance: SULFASALAZINE
     Indication: Product used for unknown indication
     Dosage: NOT SPECIFIED
     Route: 065
  5. ACTEMRA [Suspect]
     Active Substance: TOCILIZUMAB
     Indication: Product used for unknown indication
     Dosage: NOT SPECIFIED
     Route: 065
  6. ARAVA [Suspect]
     Active Substance: LEFLUNOMIDE
     Indication: Product used for unknown indication
     Route: 065
  7. GOLD SODIUM THIOMALATE [Suspect]
     Active Substance: GOLD SODIUM THIOMALATE
     Indication: Product used for unknown indication
     Route: 065
  8. GOLD [Suspect]
     Active Substance: GOLD
     Indication: Product used for unknown indication
     Route: 065
  9. REMICADE [Suspect]
     Active Substance: INFLIXIMAB
     Indication: Product used for unknown indication
     Dosage: POWDER FOR?SOLUTION?INTRAVENOUS
     Route: 065
  10. LYRICA [Concomitant]
     Active Substance: PREGABALIN
     Indication: Product used for unknown indication
  11. XELJANZ [Suspect]
     Active Substance: TOFACITINIB CITRATE
     Indication: Product used for unknown indication
     Dosage: NOT?SPECIFIED
     Route: 065
  12. ANAKINRA [Suspect]
     Active Substance: ANAKINRA
     Indication: Product used for unknown indication
     Route: 065
  13. PLAQUENIL [Suspect]
     Active Substance: HYDROXYCHLOROQUINE SULFATE
     Indication: Product used for unknown indication
     Route: 065
  14. ORENCIA [Suspect]
     Active Substance: ABATACEPT
     Indication: Product used for unknown indication
     Route: 042
  15. OXYCODONE [Suspect]
     Active Substance: OXYCODONE
     Indication: Product used for unknown indication
     Route: 065
  16. ILARIS [Suspect]
     Active Substance: CANAKINUMAB
     Indication: Product used for unknown indication
     Dosage: POWDER FOR?SOLUTION?SUBCUTANEO?US
     Route: 058
  17. OXYQUINOLINE SULFATE [Suspect]
     Active Substance: OXYQUINOLINE SULFATE
     Indication: Product used for unknown indication
     Route: 065
  18. HYDROXYCHLOROQUINE [Suspect]
     Active Substance: HYDROXYCHLOROQUINE
     Indication: Product used for unknown indication
     Route: 065
  19. MINOCYCLINE HYDROCHLORIDE [Suspect]
     Active Substance: MINOCYCLINE HYDROCHLORIDE
     Indication: Product used for unknown indication
     Route: 065
  20. CANNABIS SATIVA FLOWERING TOP [Suspect]
     Active Substance: CANNABIS SATIVA FLOWERING TOP
     Indication: Product used for unknown indication
     Route: 065

REACTIONS (33)
  - Apparent death [Fatal]
  - Joint arthroplasty [Fatal]
  - Joint swelling [Fatal]
  - Thrombosis [Fatal]
  - Contraindicated product administered [Fatal]
  - Drug intolerance [Fatal]
  - Pulmonary thrombosis [Fatal]
  - Knee arthroplasty [Fatal]
  - Sepsis [Fatal]
  - Urticaria [Fatal]
  - Intestinal sepsis [Fatal]
  - C-reactive protein abnormal [Fatal]
  - Photosensitivity reaction [Fatal]
  - C-reactive protein increased [Fatal]
  - Haemoglobin decreased [Fatal]
  - Stent placement [Fatal]
  - Pain [Fatal]
  - Myocardial infarction [Fatal]
  - Deep vein thrombosis [Fatal]
  - Product use in unapproved indication [Fatal]
  - Arthropathy [Fatal]
  - Drug hypersensitivity [Fatal]
  - Renal failure [Fatal]
  - Feeling abnormal [Fatal]
  - Interstitial lung disease [Fatal]
  - Red blood cell sedimentation rate increased [Fatal]
  - Pulmonary embolism [Fatal]
  - Diverticulitis [Fatal]
  - Stomatitis [Fatal]
  - Terminal state [Fatal]
  - Herpes zoster [Fatal]
  - Drug ineffective [Fatal]
  - Intentional product use issue [Fatal]
